FAERS Safety Report 9536668 (Version 2)
Quarter: 2013Q4

REPORT INFORMATION
  Report Type: Spontaneous
  Country: AU (occurrence: AU)
  Receive Date: 20130919
  Receipt Date: 20131129
  Transmission Date: 20140711
  Serious: Yes (Other)
  Sender: FDA-Public Use
  Company Number: AU-009507513-1309AUS005278

PATIENT
  Age: 58 Year
  Sex: Male

DRUGS (11)
  1. EZETROL [Suspect]
     Dosage: UNK
     Route: 048
     Dates: start: 2002
  2. BETALOC [Concomitant]
  3. MOBIC [Concomitant]
  4. TRITACE [Concomitant]
  5. ASPIRIN [Concomitant]
  6. LIPITOR [Concomitant]
  7. NEXIUM [Concomitant]
  8. ZINC (UNSPECIFIED) [Concomitant]
  9. VITAMINS (UNSPECIFIED) [Concomitant]
  10. MEGA-B [Concomitant]
  11. OMEGA-3 MARINE TRIGLYCERIDES [Concomitant]

REACTIONS (4)
  - Coronary artery bypass [Unknown]
  - Hot flush [Unknown]
  - Hypoaesthesia [Unknown]
  - Paraesthesia [Unknown]
